FAERS Safety Report 20541055 (Version 1)
Quarter: 2022Q1

REPORT INFORMATION
  Report Type: Spontaneous
  Country: US (occurrence: US)
  Receive Date: 20220302
  Receipt Date: 20220302
  Transmission Date: 20220423
  Serious: Yes (Other)
  Sender: FDA-Public Use
  Company Number: US-JNJFOC-20211012772

PATIENT
  Age: 85 Year
  Sex: Female
  Weight: 77.180 kg

DRUGS (4)
  1. XARELTO [Suspect]
     Active Substance: RIVAROXABAN
     Indication: Anticoagulant therapy
     Route: 048
  2. ALDACTAZIDE [Concomitant]
     Active Substance: HYDROCHLOROTHIAZIDE\SPIRONOLACTONE
     Indication: Product used for unknown indication
     Dosage: 20-25 MG
     Route: 065
  3. INDERAL [Concomitant]
     Active Substance: PROPRANOLOL HYDROCHLORIDE
     Route: 065
  4. ERGOCALCIFEROL [Concomitant]
     Active Substance: ERGOCALCIFEROL
     Route: 065

REACTIONS (8)
  - Sinusitis [Unknown]
  - Vaginal haemorrhage [Unknown]
  - Gingival bleeding [Unknown]
  - Chromaturia [Unknown]
  - Fatigue [Unknown]
  - Arthralgia [Unknown]
  - Erythema [Unknown]
  - Product label issue [Unknown]
